FAERS Safety Report 13507815 (Version 4)
Quarter: 2022Q2

REPORT INFORMATION
  Report Type: Spontaneous
  Country: US (occurrence: US)
  Receive Date: 20170503
  Receipt Date: 20220407
  Transmission Date: 20220721
  Serious: No
  Sender: FDA-Public Use
  Company Number: US-PFIZER INC-2015170696

PATIENT
  Age: 53 Year
  Sex: Female

DRUGS (47)
  1. RELPAX [Suspect]
     Active Substance: ELETRIPTAN HYDROBROMIDE
     Indication: Migraine
     Dosage: 40 MG, AS NEEDED (12 PER MONTH FOR 3 MONTHS WITH 3 REFILLS)
  2. RELPAX [Suspect]
     Active Substance: ELETRIPTAN HYDROBROMIDE
     Indication: Pain
     Dosage: 40 MG, AS NEEDED (USUALLY FOUR TIMES A WEEK)
  3. RELPAX [Suspect]
     Active Substance: ELETRIPTAN HYDROBROMIDE
     Indication: Nausea
     Dosage: 40 MG, AS NEEDED (1 TABLET PRN (AS NEEDED) X 1 TIME AS NEEDED)
     Route: 048
  4. LYRICA [Concomitant]
     Active Substance: PREGABALIN
     Indication: Fibromyalgia
     Dosage: 500 MG, DAILY (3-100MG IN A.M. AND 2-100MG AT P.M.)
  5. LYRICA [Concomitant]
     Active Substance: PREGABALIN
     Indication: Neuropathy peripheral
  6. ZOLOFT [Concomitant]
     Active Substance: SERTRALINE HYDROCHLORIDE
     Indication: Depression
     Dosage: 200 MG, 1X/DAY(100 MG 2 AT A.M.)
  7. ZYRTEC [Concomitant]
     Active Substance: CETIRIZINE HYDROCHLORIDE
     Dosage: UNK
  8. PLAQUENIL [Concomitant]
     Active Substance: HYDROXYCHLOROQUINE SULFATE
     Indication: Psoriatic arthropathy
     Dosage: 200 MG, DAILY
  9. PLAQUENIL [Concomitant]
     Active Substance: HYDROXYCHLOROQUINE SULFATE
     Dosage: 200 MG, 2X/DAY
  10. CIMETIDINE [Concomitant]
     Active Substance: CIMETIDINE
     Indication: Pruritus
     Dosage: 800 MG, 1X/DAY
  11. KLONOPIN [Concomitant]
     Active Substance: CLONAZEPAM
     Indication: Anxiety
     Dosage: 5 MG, 2X/DAY
  12. KLONOPIN [Concomitant]
     Active Substance: CLONAZEPAM
     Indication: Neck pain
     Dosage: 1 MG, 2X/DAY(1 AT A.M. AND P.M.)
  13. PROPRANOLOL [Concomitant]
     Active Substance: PROPRANOLOL HYDROCHLORIDE
     Indication: Hypertension
     Dosage: 20 MG, 1X/DAY (20 MG 1 AT A.M. )
  14. LOVASTATIN [Concomitant]
     Active Substance: LOVASTATIN
     Indication: Blood cholesterol increased
     Dosage: 40 MG, 1X/DAY (AT A.M.)
  15. SYNTHROID [Concomitant]
     Active Substance: LEVOTHYROXINE SODIUM
     Indication: Thyroid disorder
     Dosage: 50 ?G, DAILY
  16. SYNTHROID [Concomitant]
     Active Substance: LEVOTHYROXINE SODIUM
     Indication: Hypothyroidism
     Dosage: 1.0 UG, 1X/DAY EVERY MORNING
  17. HUMIRA [Concomitant]
     Active Substance: ADALIMUMAB
     Indication: Psoriatic arthropathy
     Dosage: 40 MG, UNK (40 MG/0.1ML INJECTION ONCE EVERY TWO WEEKS)
  18. HUMIRA [Concomitant]
     Active Substance: ADALIMUMAB
     Dosage: 1 ML, UNK (EVERY 2 WEEKS)
  19. METHOTREXATE [Concomitant]
     Active Substance: METHOTREXATE
     Indication: Psoriatic arthropathy
     Dosage: 25MG INJECTION OF .8 MG ONCE A WEEK
  20. METHOTREXATE [Concomitant]
     Active Substance: METHOTREXATE
     Dosage: 25MG OF 1.0 ML INJECTION ONE INJECTION EVERY WEEK
  21. LEUCOVORIN CALCIUM [Concomitant]
     Active Substance: LEUCOVORIN CALCIUM
     Indication: Nausea
     Dosage: 10 MG, 1X/DAY (10 MG ONE PILL MORNING )
  22. LEUCOVORIN CALCIUM [Concomitant]
     Active Substance: LEUCOVORIN CALCIUM
     Dosage: 10 MG, WEEKLY (AFTER METHOTREXATE)
  23. FOLIC ACID [Concomitant]
     Active Substance: FOLIC ACID
     Indication: Prophylaxis
     Dosage: 1 MG, 1X/DAY (UPPLEMENT TO METHOTREXATE INJECTIONS)
  24. PERCOCET [Concomitant]
     Active Substance: ACETAMINOPHEN\OXYCODONE HYDROCHLORIDE
     Indication: Migraine
     Dosage: 325 MG, 2X/DAY
  25. PERCOCET [Concomitant]
     Active Substance: ACETAMINOPHEN\OXYCODONE HYDROCHLORIDE
     Indication: Psoriatic arthropathy
     Dosage: 325-5 MG 3 TIMES A DAY
  26. PERCOCET [Concomitant]
     Active Substance: ACETAMINOPHEN\OXYCODONE HYDROCHLORIDE
     Indication: Spinal disorder
  27. PERCOCET [Concomitant]
     Active Substance: ACETAMINOPHEN\OXYCODONE HYDROCHLORIDE
     Indication: Arthritis
  28. PREDNISONE [Concomitant]
     Active Substance: PREDNISONE
     Indication: Psoriatic arthropathy
     Dosage: 4 MG, DAILY
  29. PREDNISONE [Concomitant]
     Active Substance: PREDNISONE
     Indication: Plantar fasciitis
     Dosage: 2 MG, 1X/DAY
  30. FLEXERIL [Concomitant]
     Active Substance: CYCLOBENZAPRINE HYDROCHLORIDE
     Indication: Fibromyalgia
     Dosage: 10 MG, 2X/DAY
  31. FLEXERIL [Concomitant]
     Active Substance: CYCLOBENZAPRINE HYDROCHLORIDE
     Dosage: 10 MG, 3X/DAY
  32. TOPAMAX [Concomitant]
     Active Substance: TOPIRAMATE
     Indication: Migraine
     Dosage: 200 MG, 1X/DAY
  33. TOPAMAX [Concomitant]
     Active Substance: TOPIRAMATE
     Indication: Headache
  34. PHENERGAN [Concomitant]
     Active Substance: PROMETHAZINE HYDROCHLORIDE
     Indication: Nausea
     Dosage: 25 MG, AS NEEDED
  35. LIDOCAINE [Concomitant]
     Active Substance: LIDOCAINE
     Indication: Arthritis
     Dosage: 4% CREAM OR GEL
  36. LIDOCAINE [Concomitant]
     Active Substance: LIDOCAINE
     Indication: Neuropathy peripheral
     Dosage: 3 %, 3X/DAY
  37. LIDOCAINE [Concomitant]
     Active Substance: LIDOCAINE
     Indication: Arthralgia
  38. TRIAMCINOLONE [Concomitant]
     Active Substance: TRIAMCINOLONE
     Indication: Psoriasis
     Dosage: 1 %, AS NEEDED
  39. Luxiq foam [Concomitant]
     Indication: Psoriasis
     Dosage: 0.12 %, UNK (AFTER SHOWER WHEN HAIR IS WET)
  40. DESONIDE [Concomitant]
     Active Substance: DESONIDE
     Indication: Psoriasis
     Dosage: 0.5 %, UNK
  41. DESONIDE [Concomitant]
     Active Substance: DESONIDE
     Dosage: 0.05 %, AS NEEDED
  42. NASACORT [Concomitant]
     Active Substance: TRIAMCINOLONE ACETONIDE
     Indication: Hypersensitivity
     Dosage: 55 UG, 1X/DAY
  43. TYLENOL [Concomitant]
     Active Substance: ACETAMINOPHEN
  44. ADVIL [Concomitant]
     Active Substance: IBUPROFEN
     Dosage: UNK
  45. ZANTAC [Concomitant]
     Active Substance: RANITIDINE HYDROCHLORIDE
     Dosage: UNK
  46. MOTRIN [Concomitant]
     Active Substance: IBUPROFEN
     Dosage: UNK
  47. METFORMIN [Concomitant]
     Active Substance: METFORMIN HYDROCHLORIDE
     Indication: Type 2 diabetes mellitus
     Dosage: 500 MG, 1X/DAY (AT NIGHT)

REACTIONS (4)
  - Vomiting [Unknown]
  - Illness [Unknown]
  - Intervertebral disc protrusion [Unknown]
  - Pain [Unknown]
